FAERS Safety Report 23221231 (Version 1)
Quarter: 2023Q4

REPORT INFORMATION
  Report Type: Spontaneous
  Country: FR (occurrence: FR)
  Receive Date: 20231123
  Receipt Date: 20231123
  Transmission Date: 20240110
  Serious: Yes (Other)
  Sender: FDA-Public Use
  Company Number: FR-UCBSA-2023053695

PATIENT
  Age: 11 Year
  Sex: Female

DRUGS (6)
  1. VALPROIC ACID [Suspect]
     Active Substance: VALPROIC ACID
     Indication: Product used for unknown indication
     Dosage: UNK (20 MG/KG/D)
     Route: 065
  2. FINTEPLA [Suspect]
     Active Substance: FENFLURAMINE
     Indication: Off label use
     Dosage: 6 MILLILITER, ONCE A DAY (3 MILLILITER, 2X/DAY (BID))
     Route: 048
     Dates: start: 202112
  3. FINTEPLA [Suspect]
     Active Substance: FENFLURAMINE
     Indication: Myoclonic epilepsy
     Dosage: 6 MILLILITER, ONCE A DAY (3 MILLILITER, 2X/DAY (BID))
     Route: 048
     Dates: start: 202202
  4. STIRIPENTOL [Suspect]
     Active Substance: STIRIPENTOL
     Indication: Product used for unknown indication
     Dosage: UNK (35 MG/KG/D)
     Route: 065
  5. CLOBAZAM [Suspect]
     Active Substance: CLOBAZAM
     Indication: Product used for unknown indication
     Dosage: UNK, DECISION TO STOP CLOBAZAM
     Route: 065
  6. TOPIRAMATE [Suspect]
     Active Substance: TOPIRAMATE
     Indication: Product used for unknown indication
     Dosage: UNK (1 MG/KG/D)
     Route: 065

REACTIONS (5)
  - Seizure [Unknown]
  - Withdrawal syndrome [Unknown]
  - Fatigue [Unknown]
  - Decreased appetite [Unknown]
  - Off label use [Unknown]

NARRATIVE: CASE EVENT DATE: 20211201
